FAERS Safety Report 4901920-1 (Version None)
Quarter: 2006Q1

REPORT INFORMATION
  Report Type: 
  Country: None (occurrence: None)
  Receive Date: 20060202
  Receipt Date: 20060202
  Transmission Date: 20060701
  Serious: Yes (Other)
  Sender: FDA-Public Use
  Company Number: None

PATIENT
  Age: 51 Year
  Sex: Male
  Weight: 82.1011 kg

DRUGS (1)
  1. ZOCOR [Suspect]
     Indication: HYPERLIPIDAEMIA
     Dosage: 20MG PO
     Route: 048
     Dates: start: 20051214, end: 20051228

REACTIONS (3)
  - MUSCLE SPASMS [None]
  - NAUSEA [None]
  - VOMITING [None]
